FAERS Safety Report 5908868-4 (Version None)
Quarter: 2008Q4

REPORT INFORMATION
  Report Type: 
  Country: None (occurrence: None)
  Receive Date: 20081001
  Receipt Date: 20080916
  Transmission Date: 20090506
  Serious: Yes (Other)
  Sender: FDA-Public Use
  Company Number: 2008S1016519

PATIENT
  Age: 66 Year
  Sex: Female

DRUGS (2)
  1. FENTANYL TRANSDERMAL SYSTEM [Suspect]
     Indication: PAIN
     Dosage: 100 UG;EVERY HOUR;TRANSDERMAL
     Route: 062
     Dates: start: 20080901
  2. ANTIHYPERTENSIVES [Concomitant]

REACTIONS (7)
  - DEHYDRATION [None]
  - DEVICE FAILURE [None]
  - DRUG INEFFECTIVE [None]
  - DRUG WITHDRAWAL SYNDROME [None]
  - GASTROENTERITIS VIRAL [None]
  - MALAISE [None]
  - TREMOR [None]
